FAERS Safety Report 6065213-4 (Version None)
Quarter: 2009Q1

REPORT INFORMATION
  Report Type: 
  Country: None (occurrence: None)
  Receive Date: 20090204
  Receipt Date: 20090126
  Transmission Date: 20090719
  Serious: Yes (Hospitalization)
  Sender: FDA-Public Use
  Company Number: PHHY2009JP03065

PATIENT
  Age: 72 Year
  Sex: Male

DRUGS (4)
  1. GLEEVEC [Suspect]
     Indication: GASTROINTESTINAL STROMAL TUMOUR
     Dosage: 400 MG, UNK
     Route: 048
     Dates: start: 20081119
  2. ENALAPRIL MALEATE [Concomitant]
     Dosage: 2.5 MG, UNK
     Route: 048
  3. LASIX [Concomitant]
     Dosage: 20 MG, UNK
     Route: 048
     Dates: start: 20081119
  4. ASPARA K [Concomitant]
     Dosage: 300 MG, UNK
     Route: 048
     Dates: start: 20081119

REACTIONS (1)
  - HYPOGLYCAEMIA [None]
